FAERS Safety Report 17604761 (Version 1)
Quarter: 2020Q1

REPORT INFORMATION
  Report Type: Spontaneous
  Country: US (occurrence: US)
  Receive Date: 20200331
  Receipt Date: 20200331
  Transmission Date: 20200409
  Serious: No
  Sender: FDA-Public Use
  Company Number: None

PATIENT
  Age: 76 Year
  Weight: 58.05 kg

DRUGS (11)
  1. CITALOPRAM [Suspect]
     Active Substance: CITALOPRAM HYDROBROMIDE
     Indication: ANXIETY
     Dosage: ?          QUANTITY:1 TABLET(S);?
     Route: 048
  2. ESZOPICLONE. [Concomitant]
     Active Substance: ESZOPICLONE
  3. GLUCOSAMINE [Concomitant]
     Active Substance: GLUCOSAMINE
  4. HCTZ [Concomitant]
     Active Substance: HYDROCHLOROTHIAZIDE
  5. BUSPIRONE [Concomitant]
     Active Substance: BUSPIRONE HYDROCHLORIDE
  6. L-THYROXINE [Concomitant]
     Active Substance: LEVOTHYROXINE
  7. VITAMIN D [Concomitant]
     Active Substance: VITAMIN D NOS
  8. AMLODIPINE [Concomitant]
     Active Substance: AMLODIPINE BESYLATE
  9. VALSARTAN. [Concomitant]
     Active Substance: VALSARTAN
  10. BYSTOLIC [Concomitant]
     Active Substance: NEBIVOLOL HYDROCHLORIDE
  11. LATANOPROST. [Concomitant]
     Active Substance: LATANOPROST

REACTIONS (7)
  - Asthenia [None]
  - Tremor [None]
  - Hemiparesis [None]
  - Shock [None]
  - Headache [None]
  - Migraine [None]
  - Limb discomfort [None]

NARRATIVE: CASE EVENT DATE: 20200301
